FAERS Safety Report 6620553-2 (Version None)
Quarter: 2010Q1

REPORT INFORMATION
  Report Type: 
  Country: None (occurrence: None)
  Receive Date: 20100309
  Receipt Date: 20100304
  Transmission Date: 20100710
  Serious: Yes (Death, Other)
  Sender: FDA-Public Use
  Company Number: JP-BAYER-200914701BYL

PATIENT
  Age: 69 Year
  Sex: Male
  Weight: 56 kg

DRUGS (9)
  1. NEXAVAR [Suspect]
     Indication: HEPATIC NEOPLASM MALIGNANT
     Dosage: UNIT DOSE: 200 MG
     Route: 048
     Dates: start: 20090611, end: 20090830
  2. NEXAVAR [Suspect]
     Dosage: UNIT DOSE: 200 MG
     Route: 048
     Dates: start: 20090831, end: 20090916
  3. BRANUTE [Concomitant]
     Dosage: SINCE BEFORE ADMINISTRATION
     Route: 048
  4. PREDONINE [Concomitant]
     Dosage: SINCE BEFORE ADMINISTRATION
     Route: 048
  5. PRIMPERAN [Concomitant]
     Dosage: SINCE BEFORE ADMINISTRATION
     Route: 048
  6. PELTAZON [Concomitant]
     Dosage: SINCE BEFORE ADMINISTRATION
     Route: 048
  7. HALCION [Concomitant]
     Route: 048
     Dates: start: 20050101
  8. NITOROL R [Concomitant]
     Indication: ISCHAEMIC HEART DISEASE PROPHYLAXIS
     Route: 048
     Dates: start: 20050101
  9. OMEPRAL [Concomitant]
     Route: 048
     Dates: start: 20081201

REACTIONS (4)
  - HEPATIC ENCEPHALOPATHY [None]
  - HEPATIC FUNCTION ABNORMAL [None]
  - HEPATIC NEOPLASM MALIGNANT [None]
  - PALMAR-PLANTAR ERYTHRODYSAESTHESIA SYNDROME [None]
